FAERS Safety Report 4454094-8 (Version None)
Quarter: 2004Q3

REPORT INFORMATION
  Report Type: 
  Country: None (occurrence: None)
  Receive Date: 20040902
  Receipt Date: 20040715
  Transmission Date: 20050211
  Serious: No
  Sender: FDA-Public Use
  Company Number: 200419189BWH

PATIENT
  Age: 61 Year
  Sex: Male

DRUGS (5)
  1. LEVITRA [Suspect]
     Indication: ERECTILE DYSFUNCTION
     Dosage: 10 MG, PRN, ORAL
     Route: 048
     Dates: start: 20040601
  2. GLIPIZIDE [Concomitant]
  3. LIPITOR [Concomitant]
  4. LESTRIL [Concomitant]
  5. AVANDIA [Concomitant]

REACTIONS (1)
  - ERECTILE DYSFUNCTION [None]
